FAERS Safety Report 11544277 (Version 1)
Quarter: 2015Q3

REPORT INFORMATION
  Report Type: Spontaneous
  Country: AU (occurrence: AU)
  Receive Date: 20150924
  Receipt Date: 20150924
  Transmission Date: 20151125
  Serious: Yes (Life-Threatening, Hospitalization)
  Sender: FDA-Public Use
  Company Number: AU-HOSPIRA-3013862

PATIENT
  Age: 68 Year
  Sex: Male

DRUGS (6)
  1. NITROGLYCERIN. [Concomitant]
     Active Substance: NITROGLYCERIN
     Indication: ARTERIOSPASM CORONARY
  2. NORADRENALINE TARTRATE [Suspect]
     Active Substance: NOREPINEPHRINE BITARTRATE
     Indication: ELECTROCARDIOGRAM ST SEGMENT ELEVATION
     Dosage: 10 MCG/MIN
     Route: 041
  3. METARAMINOL [Suspect]
     Active Substance: METARAMINOL
     Indication: ELECTROCARDIOGRAM ST SEGMENT ELEVATION
     Route: 040
  4. METARAMINOL [Suspect]
     Active Substance: METARAMINOL
     Indication: HYPOTENSION
     Route: 040
  5. NORADRENALINE TARTRATE [Suspect]
     Active Substance: NOREPINEPHRINE BITARTRATE
     Indication: HYPOTENSION
     Dosage: 10 MCG/MIN
     Route: 041
  6. HEPARIN SODIUM. [Suspect]
     Active Substance: HEPARIN SODIUM
     Indication: ARTERIOSPASM CORONARY
     Dosage: 10000 U

REACTIONS (3)
  - Cardiac arrest [Recovered/Resolved]
  - Post procedural haemorrhage [Recovered/Resolved]
  - Arteriospasm coronary [Recovered/Resolved]
